FAERS Safety Report 11633883 (Version 1)
Quarter: 2015Q4

REPORT INFORMATION
  Report Type: Spontaneous
  Country: RU (occurrence: RU)
  Receive Date: 20151015
  Receipt Date: 20151015
  Transmission Date: 20160304
  Serious: Yes (Other)
  Sender: FDA-Public Use
  Company Number: RU-EMD SERONO-8046972

PATIENT
  Age: 29 Year
  Sex: Female

DRUGS (2)
  1. GONAL-F [Suspect]
     Active Substance: FOLLITROPIN
     Indication: INFERTILITY
  2. GONAL-F [Suspect]
     Active Substance: FOLLITROPIN
     Indication: SUPEROVULATION
     Route: 058

REACTIONS (3)
  - Body temperature increased [Recovered/Resolved]
  - Hypertensive crisis [Recovered/Resolved]
  - Erythema [Recovered/Resolved]

NARRATIVE: CASE EVENT DATE: 201509
